FAERS Safety Report 9507205 (Version 1)
Quarter: 2013Q1

REPORT INFORMATION
  Report Type: Spontaneous
  Country: US (occurrence: None)
  Receive Date: 20130301
  Receipt Date: 20130301
  Transmission Date: 20140127
  Serious: Yes (Other)
  Sender: FDA-Public Use
  Company Number: RB-40968-2012

PATIENT
  Sex: Male
  Weight: 3.4 kg

DRUGS (1)
  1. BUPRENORPHINE [Suspect]
     Indication: BACK PAIN
     Dosage: 24 MG, 24 MG
     Route: 063
     Dates: start: 201106, end: 20120124

REACTIONS (7)
  - Foetal exposure during pregnancy [None]
  - Irritability [None]
  - Agitation neonatal [None]
  - Sneezing [None]
  - Drug withdrawal syndrome neonatal [None]
  - Exposure during breast feeding [None]
  - Tension [None]
